FAERS Safety Report 8541270-8 (Version None)
Quarter: 2012Q3

REPORT INFORMATION
  Report Type: 
  Country: None (occurrence: None)
  Receive Date: 20120716
  Receipt Date: 20120703
  Transmission Date: 20120928
  Serious: Yes (Hospitalization)
  Sender: FDA-Public Use
  Company Number: US-JNJFOC-20120516562

PATIENT
  Age: 65 Year
  Sex: Female
  Weight: 62 kg

DRUGS (4)
  1. BORTEZOMIB [Suspect]
     Indication: ACUTE MYELOID LEUKAEMIA
     Dosage: 1.3 MG/M2, SUBCUTANEOUS
     Route: 058
     Dates: start: 20120329, end: 20120408
  2. BORTEZOMIB [Suspect]
     Indication: ACUTE MYELOID LEUKAEMIA
     Dosage: 1.3 MG/M2, SUBCUTANEOUS
     Route: 058
     Dates: start: 20120529
  3. DECITABINE [Suspect]
     Indication: ACUTE MYELOID LEUKAEMIA
     Dosage: 20 MG/M2, INTRAVENOUS
     Route: 042
     Dates: start: 20120329, end: 20120408
  4. DECITABINE [Suspect]
     Indication: ACUTE MYELOID LEUKAEMIA
     Dosage: 20 MG/M2, INTRAVENOUS
     Route: 042
     Dates: start: 20120529

REACTIONS (12)
  - FEBRILE NEUTROPENIA [None]
  - VISION BLURRED [None]
  - CHILLS [None]
  - STREPTOCOCCAL BACTERAEMIA [None]
  - PLATELET COUNT DECREASED [None]
  - PARAESTHESIA [None]
  - ARTHRALGIA [None]
  - GAIT DISTURBANCE [None]
  - DIZZINESS [None]
  - PAIN IN EXTREMITY [None]
  - INSOMNIA [None]
  - PYREXIA [None]
